FAERS Safety Report 10754702 (Version 1)
Quarter: 2015Q1

REPORT INFORMATION
  Report Type: Spontaneous
  Country: US (occurrence: None)
  Receive Date: 20150130
  Receipt Date: 20150130
  Transmission Date: 20150721
  Serious: Yes (Hospitalization)
  Sender: FDA-Public Use
  Company Number: None

PATIENT
  Age: 20 Year
  Sex: Male
  Weight: 94.7 kg

DRUGS (6)
  1. ONCASPAR [Suspect]
     Active Substance: PEGASPARGASE
     Dates: end: 20150107
  2. CYTARABINE. [Suspect]
     Active Substance: CYTARABINE
     Dates: end: 20150104
  3. METHOTREXATE [Suspect]
     Active Substance: METHOTREXATE
     Dates: end: 20150122
  4. VINCRISTINE [Suspect]
     Active Substance: VINCRISTINE
     Dates: end: 20150122
  5. DAUNORUBICIN [Suspect]
     Active Substance: DAUNORUBICIN
     Dates: end: 20150122
  6. PREDNISONE. [Suspect]
     Active Substance: PREDNISONE
     Dates: end: 20150113

REACTIONS (10)
  - Hypoalbuminaemia [None]
  - Acute kidney injury [None]
  - Gastrointestinal haemorrhage [None]
  - Headache [None]
  - Respiratory failure [None]
  - Staphylococcal infection [None]
  - Hypotension [None]
  - Pneumonia [None]
  - Occult blood positive [None]
  - Disseminated intravascular coagulation [None]

NARRATIVE: CASE EVENT DATE: 20150113
